FAERS Safety Report 8059042-X (Version None)
Quarter: 2012Q1

REPORT INFORMATION
  Report Type: 
  Country: None (occurrence: None)
  Receive Date: 20120120
  Receipt Date: 20110509
  Transmission Date: 20120608
  Serious: No
  Sender: FDA-Public Use
  Company Number: US-BAUSCH-2011BL003244

PATIENT
  Age: 74 Year
  Sex: Female

DRUGS (6)
  1. ALLEGRA [Concomitant]
     Indication: SEASONAL ALLERGY
     Route: 048
  2. VITAMIN D [Concomitant]
  3. LOVAZA [Concomitant]
  4. ALAWAY [Suspect]
     Indication: EYE ALLERGY
     Route: 047
     Dates: start: 20110505, end: 20110508
  5. MULTI-VITAMINS [Concomitant]
  6. SIMVASTATIN [Concomitant]

REACTIONS (2)
  - LACRIMATION INCREASED [None]
  - INSTILLATION SITE PAIN [None]
